FAERS Safety Report 5451841-3 (Version None)
Quarter: 2007Q3

REPORT INFORMATION
  Report Type: 
  Country: None (occurrence: None)
  Receive Date: 20070912
  Receipt Date: 20070831
  Transmission Date: 20080115
  Serious: Yes (Other)
  Sender: FDA-Public Use
  Company Number: B0486244A

PATIENT
  Sex: Male

DRUGS (4)
  1. AMOXICILLIN TRIHYDRATE [Suspect]
  2. OMEPRAZOLE [Suspect]
     Dosage: 20 MG
  3. PREDNISONE [Concomitant]
  4. METOPROLOL [Concomitant]

REACTIONS (3)
  - ANAPHYLACTIC REACTION [None]
  - NEPHRITIS INTERSTITIAL [None]
  - RENAL FAILURE ACUTE [None]
